FAERS Safety Report 5289254-X (Version None)
Quarter: 2007Q2

REPORT INFORMATION
  Report Type: 
  Country: None (occurrence: None)
  Receive Date: 20070403
  Receipt Date: 20070403
  Transmission Date: 20071010
  Serious: No
  Sender: FDA-Public Use
  Company Number: None

PATIENT
  Age: 84 Year
  Sex: Female
  Weight: 47.6277 kg

DRUGS (1)
  1. BONIVA [Suspect]
     Indication: OSTEOPOROSIS
     Dosage: NOT KNOWN  ABOUT EVERY 3 MOS  IV (DURATION: APPROX EVERY 3 MONTHS)
     Route: 042
     Dates: start: 20060628, end: 20070305

REACTIONS (8)
  - ARTHRALGIA [None]
  - ASTHENIA [None]
  - BONE PAIN [None]
  - FALL [None]
  - LOSS OF CONSCIOUSNESS [None]
  - PAIN [None]
  - WALKING AID USER [None]
  - WHEELCHAIR USER [None]
